FAERS Safety Report 8471695-0 (Version None)
Quarter: 2012Q2

REPORT INFORMATION
  Report Type: 
  Country: None (occurrence: None)
  Receive Date: 20120627
  Receipt Date: 20120613
  Transmission Date: 20120825
  Serious: Yes (Disabling)
  Sender: FDA-Public Use
  Company Number: CR-GLAXOSMITHKLINE-A0982360A

PATIENT
  Age: 56 Year
  Sex: Male

DRUGS (1)
  1. MALARONE [Suspect]
     Indication: MALARIA PROPHYLAXIS
     Route: 065
     Dates: start: 20120201

REACTIONS (4)
  - FATIGUE [None]
  - THROMBOCYTOPENIA [None]
  - NEUTROPENIA [None]
  - ASTHENIA [None]
